FAERS Safety Report 15838037 (Version 1)
Quarter: 2019Q1

REPORT INFORMATION
  Report Type: Spontaneous
  Country: US (occurrence: US)
  Receive Date: 20190117
  Receipt Date: 20190117
  Transmission Date: 20190417
  Serious: No
  Sender: FDA-Public Use
  Company Number: US-BAYER-2019-011035

PATIENT
  Sex: Male

DRUGS (6)
  1. GABAPENTIN. [Concomitant]
     Active Substance: GABAPENTIN
     Indication: RESTLESS LEGS SYNDROME
  2. ALKA-SELTZER PLUS MAXIMUM STRENGTH COUGH AND MUCUS DM [Suspect]
     Active Substance: DEXTROMETHORPHAN HYDROBROMIDE\GUAIFENESIN
     Indication: RHINORRHOEA
     Dosage: 1/2 TABLET
     Route: 048
  3. VICKS NYQUIL [Suspect]
     Active Substance: ACETAMINOPHEN\DEXTROMETHORPHAN HYDROBROMIDE\DOXYLAMINE SUCCINATE
     Indication: RHINORRHOEA
  4. MUCINEX D [Suspect]
     Active Substance: GUAIFENESIN\PSEUDOEPHEDRINE HYDROCHLORIDE
     Indication: RHINORRHOEA
  5. ALKA-SELTZER PLUS MAX COUGH, MUCUS AND CONGESTION [Suspect]
     Active Substance: DEXTROMETHORPHAN HYDROBROMIDE\GUAIFENESIN
     Indication: RHINORRHOEA
     Dosage: 1 DF
     Route: 048
  6. ACETAMINOPHEN. [Suspect]
     Active Substance: ACETAMINOPHEN
     Indication: RHINORRHOEA

REACTIONS (5)
  - Product use in unapproved indication [Unknown]
  - Underdose [None]
  - Feeling jittery [Unknown]
  - Somnolence [Unknown]
  - Expired product administered [Unknown]
